FAERS Safety Report 7420811-8 (Version None)
Quarter: 2011Q2

REPORT INFORMATION
  Report Type: 
  Country: None (occurrence: None)
  Receive Date: 20110418
  Receipt Date: 20110411
  Transmission Date: 20111010
  Serious: Yes (Hospitalization, Other)
  Sender: FDA-Public Use
  Company Number: US-US-EMD SERONO, INC.-7045420

PATIENT
  Sex: Female
  Weight: 97 kg

DRUGS (7)
  1. BUMETIDINE [Concomitant]
     Indication: HYPERTENSION
  2. ATENOLOL [Concomitant]
     Indication: HYPERTENSION
  3. REMERON [Concomitant]
     Indication: DEPRESSION
  4. WELLBUTRIN [Concomitant]
     Indication: DEPRESSION
  5. SOLU-MEDROL [Concomitant]
     Dates: end: 20110201
  6. ALDACTONE [Concomitant]
     Indication: HYPERTENSION
  7. REBIF [Suspect]
     Indication: MULTIPLE SCLEROSIS
     Route: 058
     Dates: start: 20020820, end: 20110201

REACTIONS (6)
  - DRUG INTOLERANCE [None]
  - INJECTION SITE REACTION [None]
  - DIABETES MELLITUS [None]
  - BLOOD CHOLESTEROL INCREASED [None]
  - INJECTION SITE INFECTION [None]
  - INJECTION SITE CELLULITIS [None]
